FAERS Safety Report 23246282 (Version 1)
Quarter: 2023Q4

REPORT INFORMATION
  Report Type: Spontaneous
  Country: US (occurrence: US)
  Receive Date: 20231130
  Receipt Date: 20231130
  Transmission Date: 20240109
  Serious: Yes (Other)
  Sender: FDA-Public Use
  Company Number: US-AMGEN-USASP2023211087

PATIENT
  Age: 57 Year
  Sex: Female

DRUGS (10)
  1. RITUXIMAB [Suspect]
     Active Substance: RITUXIMAB
     Indication: Transplant rejection
     Dosage: UNK
     Route: 065
  2. HUMAN IMMUNOGLOBULIN G [Concomitant]
     Active Substance: HUMAN IMMUNOGLOBULIN G
     Indication: Transplant rejection
  3. TACROLIMUS [Concomitant]
     Active Substance: TACROLIMUS
     Dosage: UNK
     Route: 065
  4. CYCLOSPORINE [Concomitant]
     Active Substance: CYCLOSPORINE
  5. ECULIZUMAB [Concomitant]
     Active Substance: ECULIZUMAB
     Dosage: UNK
     Route: 065
  6. SIROLIMUS [Concomitant]
     Active Substance: SIROLIMUS
     Dosage: UNK
     Route: 065
  7. MYCOPHENOLATE MOFETIL [Concomitant]
     Active Substance: MYCOPHENOLATE MOFETIL
     Dosage: UNK
     Route: 065
  8. AZATHIOPRINE [Concomitant]
     Active Substance: AZATHIOPRINE
     Indication: Diarrhoea
     Dosage: UNK
     Route: 065
  9. BELATACEPT [Concomitant]
     Active Substance: BELATACEPT
  10. PREDNISONE [Concomitant]
     Active Substance: PREDNISONE
     Dosage: 5 MILLIGRAM
     Route: 065

REACTIONS (4)
  - Atypical haemolytic uraemic syndrome [Unknown]
  - Gene mutation [Unknown]
  - Diarrhoea [Unknown]
  - Off label use [Unknown]
